FAERS Safety Report 7524550-4 (Version None)
Quarter: 2011Q2

REPORT INFORMATION
  Report Type: 
  Country: None (occurrence: None)
  Receive Date: 20110606
  Receipt Date: 20110526
  Transmission Date: 20111010
  Serious: Yes (Hospitalization, Other)
  Sender: FDA-Public Use
  Company Number: US-BAYER-200942479NA

PATIENT
  Age: 38 Year
  Sex: Female
  Weight: 128 kg

DRUGS (16)
  1. FLONASE [Concomitant]
     Indication: SINUSITIS
  2. VILOX [Concomitant]
     Indication: ANTIBIOTIC THERAPY
  3. PHENERGAN [Concomitant]
     Indication: NAUSEA
     Dosage: UNK
  4. OXYCODONE HCL [Concomitant]
     Dosage: 15 MG, UNK
  5. YASMIN [Suspect]
     Indication: MENSTRUAL CYCLE MANAGEMENT
     Dosage: UNK
     Dates: start: 20100101
  6. LODIANE [Concomitant]
     Indication: SINUSITIS
  7. VALIUM [Concomitant]
     Dosage: 10 MG, UNK
  8. BENICAR [Concomitant]
     Indication: HYPERTENSION
     Dosage: UNK
     Dates: start: 20061130
  9. NAPROXEN [Concomitant]
  10. YASMIN [Suspect]
     Indication: CONTRACEPTION
     Dosage: UNK
     Dates: start: 20031001, end: 20090501
  11. YASMIN [Suspect]
     Indication: DYSMENORRHOEA
  12. DROSPIRENONE AND ETHINYL ESTRADIOL [Suspect]
     Indication: MENSTRUAL CYCLE MANAGEMENT
  13. DROSPIRENONE AND ETHINYL ESTRADIOL [Suspect]
     Indication: ORAL CONTRACEPTION
     Dosage: UNK
     Dates: start: 20090601, end: 20091201
  14. LORTAB [Concomitant]
     Indication: PAIN
     Dosage: UNK
     Dates: start: 20061220
  15. COREG [Concomitant]
     Indication: HYPERTENSION
     Dosage: 625 MG, UNK
  16. ZANTAC [Concomitant]
     Indication: DYSPEPSIA
     Dosage: 240 MG, UNK

REACTIONS (9)
  - MUSCLE SPASMS [None]
  - WEIGHT INCREASED [None]
  - MENTAL DISORDER [None]
  - CHOLELITHIASIS [None]
  - CHOLESTEROSIS [None]
  - DYSPEPSIA [None]
  - CHOLECYSTITIS [None]
  - ABDOMINAL PAIN UPPER [None]
  - PAIN [None]
